FAERS Safety Report 8444638-3 (Version None)
Quarter: 2012Q2

REPORT INFORMATION
  Report Type: 
  Country: None (occurrence: None)
  Receive Date: 20120618
  Receipt Date: 20120612
  Transmission Date: 20120825
  Serious: Yes (Other)
  Sender: FDA-Public Use
  Company Number: US-PFIZER INC-2012141671

PATIENT
  Sex: Female
  Weight: 61.224 kg

DRUGS (7)
  1. PREMARIN [Suspect]
     Indication: HOT FLUSH
     Dosage: 1.25 MG, DAILY
     Dates: start: 19900101
  2. PREMARIN [Suspect]
     Dosage: UNK
  3. ATENOLOL [Concomitant]
     Indication: HEADACHE
     Dosage: 50 MG, DAILY
  4. PREMARIN [Suspect]
     Dosage: 0.625 MG, DAILY
  5. PREMARIN [Suspect]
     Dosage: 0.3 MG, DAILY
  6. ATENOLOL [Concomitant]
     Indication: HYPERTENSION
  7. PREMARIN [Suspect]
     Dosage: 0.9 MG, DAILY

REACTIONS (1)
  - CARDIAC DISORDER [None]
